FAERS Safety Report 13803263 (Version 1)
Quarter: 2017Q3

REPORT INFORMATION
  Report Type: Report from Study
  Country: GB (occurrence: GB)
  Receive Date: 20170728
  Receipt Date: 20170728
  Transmission Date: 20171127
  Serious: Yes (Death, Other)
  Sender: FDA-Public Use
  Company Number: GB-ROCHE-1967981

PATIENT

DRUGS (2)
  1. RITUXIMAB. [Suspect]
     Active Substance: RITUXIMAB
     Indication: CHRONIC LYMPHOCYTIC LEUKAEMIA
     Route: 042
  2. IDELALISIB [Suspect]
     Active Substance: IDELALISIB
     Indication: CHRONIC LYMPHOCYTIC LEUKAEMIA
     Dosage: CONTINUOUSLY UNTIL DISEASE PROGRESSION OR INTOLERABILITY
     Route: 048

REACTIONS (11)
  - Pneumocystis jirovecii pneumonia [Unknown]
  - Pneumonitis [Unknown]
  - Diarrhoea [Unknown]
  - Pyrexia [Unknown]
  - Neutropenia [Unknown]
  - Aspartate aminotransferase increased [Unknown]
  - Febrile neutropenia [Unknown]
  - Colitis [Unknown]
  - Cytomegalovirus infection [Unknown]
  - Infection [Fatal]
  - Alanine aminotransferase increased [Unknown]
